FAERS Safety Report 6058204-0 (Version None)
Quarter: 2009Q1

REPORT INFORMATION
  Report Type: 
  Country: None (occurrence: None)
  Receive Date: 20090130
  Receipt Date: 20090126
  Transmission Date: 20090719
  Serious: Yes (Other)
  Sender: FDA-Public Use
  Company Number: GB-PFIZER INC-2009161393

PATIENT

DRUGS (1)
  1. LIPITOR [Suspect]
     Route: 048

REACTIONS (7)
  - ARTHRITIS [None]
  - BLOOD CHOLESTEROL INCREASED [None]
  - DIABETES MELLITUS [None]
  - FEELING ABNORMAL [None]
  - HEART RATE INCREASED [None]
  - INSOMNIA [None]
  - PRODUCT QUALITY ISSUE [None]
